FAERS Safety Report 21478512 (Version 1)
Quarter: 2022Q4

REPORT INFORMATION
  Report Type: Spontaneous
  Country: US (occurrence: None)
  Receive Date: 20221019
  Receipt Date: 20221019
  Transmission Date: 20230113
  Serious: Yes (Hospitalization, Other)
  Sender: FDA-Public Use
  Company Number: 2022A345366

PATIENT
  Age: 1083 Month
  Sex: Female
  Weight: 43.1 kg

DRUGS (7)
  1. SEROQUEL [Suspect]
     Active Substance: QUETIAPINE FUMARATE
     Route: 048
  2. METOPROLOL SUCCINATE [Suspect]
     Active Substance: METOPROLOL SUCCINATE
     Route: 048
  3. OXYCODONE HYDROCHLORIDE [Concomitant]
     Active Substance: OXYCODONE HYDROCHLORIDE
  4. ELIQUIS [Concomitant]
     Active Substance: APIXABAN
  5. LOSARTAN [Concomitant]
     Active Substance: LOSARTAN
  6. TRAMADOL [Concomitant]
     Active Substance: TRAMADOL
  7. XANAX [Concomitant]
     Active Substance: ALPRAZOLAM

REACTIONS (15)
  - COVID-19 [Unknown]
  - Urinary tract infection [Unknown]
  - Pneumothorax [Unknown]
  - Cerebrovascular accident [Unknown]
  - Hip fracture [Unknown]
  - Anuria [Unknown]
  - Dementia [Unknown]
  - Gait disturbance [Unknown]
  - Mouth breathing [Unknown]
  - Hypophagia [Unknown]
  - Abnormal behaviour [Unknown]
  - Glassy eyes [Unknown]
  - Eye disorder [Unknown]
  - Visual impairment [Unknown]
  - Excessive eye blinking [Unknown]

NARRATIVE: CASE EVENT DATE: 20220801
